FAERS Safety Report 9716127 (Version 1)
Quarter: 2013Q4

REPORT INFORMATION
  Report Type: Spontaneous
  Country: US (occurrence: None)
  Receive Date: 20131126
  Receipt Date: 20131126
  Transmission Date: 20140711
  Serious: No
  Sender: FDA-Public Use
  Company Number: None

PATIENT
  Age: 17 Year
  Sex: Female

DRUGS (1)
  1. AFINITOR 10MG NOVARTIS [Suspect]
     Dosage: 10MG, QD, PO
     Route: 048

REACTIONS (6)
  - Mood swings [None]
  - Crying [None]
  - Decreased appetite [None]
  - Weight decreased [None]
  - Stomatitis [None]
  - Tremor [None]
